FAERS Safety Report 25575445 (Version 1)
Quarter: 2025Q3

REPORT INFORMATION
  Report Type: Spontaneous
  Country: CA (occurrence: CA)
  Receive Date: 20250718
  Receipt Date: 20250718
  Transmission Date: 20251020
  Serious: Yes (Life-Threatening, Hospitalization)
  Sender: ACCORD
  Company Number: CA-Accord-494768

PATIENT
  Age: 80 Year
  Sex: Male

DRUGS (14)
  1. METOPROLOL [Suspect]
     Active Substance: METOPROLOL
     Indication: Cardiac failure
     Dosage: RAPID UP-TITRATION
  2. SPIRONOLACTONE [Suspect]
     Active Substance: SPIRONOLACTONE
     Indication: Cardiac failure
  3. DAPAGLIFLOZIN [Suspect]
     Active Substance: DAPAGLIFLOZIN
     Indication: Cardiac failure
  4. PERINDOPRIL [Suspect]
     Active Substance: PERINDOPRIL
     Indication: Cardiac failure
  5. FUROSEMIDE [Concomitant]
     Active Substance: FUROSEMIDE
     Indication: Atrial fibrillation
     Dosage: WHICH HE HAD BEEN STABLE ON FOR OVER 6 YEARS
  6. ESCITALOPRAM [Concomitant]
     Active Substance: ESCITALOPRAM OXALATE
     Indication: Atrial fibrillation
  7. PERINDOPRIL [Suspect]
     Active Substance: PERINDOPRIL
     Indication: Arrhythmia induced cardiomyopathy
  8. METOPROLOL [Suspect]
     Active Substance: METOPROLOL
     Indication: Drug interaction
     Dosage: RAPID UP-TITRATION
  9. SPIRONOLACTONE [Suspect]
     Active Substance: SPIRONOLACTONE
     Indication: Drug interaction
  10. DAPAGLIFLOZIN [Suspect]
     Active Substance: DAPAGLIFLOZIN
     Indication: Drug interaction
  11. PERINDOPRIL [Suspect]
     Active Substance: PERINDOPRIL
     Indication: Drug interaction
  12. METOPROLOL [Suspect]
     Active Substance: METOPROLOL
     Indication: Arrhythmia induced cardiomyopathy
     Dosage: RAPID UP-TITRATION
  13. DAPAGLIFLOZIN [Suspect]
     Active Substance: DAPAGLIFLOZIN
     Indication: Arrhythmia induced cardiomyopathy
  14. SPIRONOLACTONE [Suspect]
     Active Substance: SPIRONOLACTONE
     Indication: Arrhythmia induced cardiomyopathy

REACTIONS (2)
  - Sinus bradycardia [Recovered/Resolved]
  - Cardiogenic shock [Recovered/Resolved]
